FAERS Safety Report 11244108 (Version 1)
Quarter: 2015Q3

REPORT INFORMATION
  Report Type: Spontaneous
  Country: CA (occurrence: CA)
  Receive Date: 20150707
  Receipt Date: 20150707
  Transmission Date: 20151125
  Serious: Yes (Hospitalization, Other)
  Sender: FDA-Public Use
  Company Number: CA-HOSPIRA-2680752

PATIENT
  Age: 90 Year
  Sex: Female

DRUGS (1)
  1. CEFAZOLIN [Suspect]
     Active Substance: CEFAZOLIN
     Indication: PRODUCT USED FOR UNKNOWN INDICATION
     Route: 051

REACTIONS (7)
  - Hypophagia [Recovering/Resolving]
  - Angina pectoris [Recovering/Resolving]
  - Asthenia [Recovering/Resolving]
  - Rash pruritic [Recovering/Resolving]
  - Peritonitis [Recovering/Resolving]
  - Drug hypersensitivity [Recovering/Resolving]
  - Dehydration [Recovering/Resolving]
